FAERS Safety Report 24217153 (Version 3)
Quarter: 2025Q1

REPORT INFORMATION
  Report Type: Spontaneous
  Country: GB (occurrence: GB)
  Receive Date: 20240816
  Receipt Date: 20250214
  Transmission Date: 20250409
  Serious: Yes (Death, Other)
  Sender: VERTEX
  Company Number: GB-VERTEX PHARMACEUTICALS-2024-013115

PATIENT
  Sex: Male

DRUGS (2)
  1. ELEXACAFTOR\IVACAFTOR\TEZACAFTOR [Suspect]
     Active Substance: ELEXACAFTOR\IVACAFTOR\TEZACAFTOR
     Indication: Cystic fibrosis
     Dosage: 75MG IVACAFTOR/ 50MG TEZACAFTOR/ 100MG ELEXACAFTOR, 2 TABLETS IN AM
     Route: 048
  2. KALYDECO [Suspect]
     Active Substance: IVACAFTOR
     Indication: Cystic fibrosis
     Dosage: 1 TAB EVERY EVENING
     Route: 048

REACTIONS (3)
  - Death [Fatal]
  - Hospice care [Not Recovered/Not Resolved]
  - Bedridden [Not Recovered/Not Resolved]
